FAERS Safety Report 5528532-3 (Version None)
Quarter: 2007Q4

REPORT INFORMATION
  Report Type: 
  Country: None (occurrence: None)
  Receive Date: 20071121
  Receipt Date: 20071106
  Transmission Date: 20080405
  Serious: Yes (Other)
  Sender: FDA-Public Use
  Company Number: TNZFR200700128

PATIENT
  Age: 70 Year
  Sex: Female

DRUGS (1)
  1. INNOHEP [Suspect]
     Indication: ATRIAL FIBRILLATION
     Dosage: (10000 IU, DAILY), SUBCUTANEOUS
     Route: 058
     Dates: start: 20071105, end: 20071105

REACTIONS (2)
  - MALAISE [None]
  - NAUSEA [None]
